FAERS Safety Report 6414581-X (Version None)
Quarter: 2009Q4

REPORT INFORMATION
  Report Type: 
  Country: None (occurrence: None)
  Receive Date: 20091021
  Receipt Date: 20091008
  Transmission Date: 20100525
  Serious: Yes (Death)
  Sender: FDA-Public Use
  Company Number: 2009US003797

PATIENT
  Sex: Male
  Weight: 80 kg

DRUGS (1)
  1. AMBISOME [Suspect]
     Indication: FUNGAL INFECTION
     Dosage: 3 MG/KG, UID/QD, IV NOS
     Route: 042
     Dates: start: 20050801, end: 20051001

REACTIONS (1)
  - DRUG INEFFECTIVE [None]
